FAERS Safety Report 9969207 (Version 2)
Quarter: 2014Q2

REPORT INFORMATION
  Report Type: Spontaneous
  Country: CA (occurrence: CA)
  Receive Date: 20140306
  Receipt Date: 20140416
  Transmission Date: 20141212
  Serious: Yes (Hospitalization, Other)
  Sender: FDA-Public Use
  Company Number: CA-AMGEN-CANSP2014015548

PATIENT
  Age: 70 Year
  Sex: Male

DRUGS (11)
  1. ENBREL [Suspect]
     Indication: PSORIATIC ARTHROPATHY
     Dosage: 50 MG, UNK
     Route: 065
     Dates: start: 20110913
  2. PREDNISONE [Concomitant]
     Dosage: UNK
  3. PANTOPRAZOLE [Concomitant]
     Dosage: UNK
  4. VITAMIN D                          /00107901/ [Concomitant]
     Dosage: UNK
  5. ATENOLOL [Concomitant]
     Dosage: 50 MG, UNK
     Route: 065
  6. FUROSEMIDE [Concomitant]
     Dosage: 20 MG, UNK
     Route: 065
  7. VESICARE [Concomitant]
     Dosage: 5 MG, UNK
     Route: 065
  8. ALLOPURINOL [Concomitant]
     Dosage: 300 MG, UNK
     Route: 065
  9. ASPIRIN [Concomitant]
     Dosage: 80 MG, UNK
  10. XATRAL [Concomitant]
     Dosage: UNK
  11. PROLIA [Concomitant]
     Dosage: 2 INJECTION PER YEAR
     Route: 065

REACTIONS (5)
  - Blood sodium decreased [Recovering/Resolving]
  - Hip fracture [Recovering/Resolving]
  - Haemoglobin decreased [Recovering/Resolving]
  - Fall [Recovering/Resolving]
  - Blood test abnormal [Recovering/Resolving]
